FAERS Safety Report 17742630 (Version 1)
Quarter: 2020Q2

REPORT INFORMATION
  Report Type: Spontaneous
  Country: DE (occurrence: DE)
  Receive Date: 20200504
  Receipt Date: 20200504
  Transmission Date: 20200714
  Serious: Yes (Hospitalization)
  Sender: FDA-Public Use
  Company Number: DE-MYLANLABS-2020M1043096

PATIENT
  Sex: Male
  Weight: 85 kg

DRUGS (3)
  1. LEVETIRACETAM. [Interacting]
     Active Substance: LEVETIRACETAM
     Dosage: 2 DF, BID (250 MG, IN THE MORNING AND EVENING)
     Route: 065
     Dates: start: 2019, end: 2019
  2. LEVETIRACETAM. [Interacting]
     Active Substance: LEVETIRACETAM
     Dosage: 2 DF, BID (500-0-500) IN THE MORNING AND AND IN THE EVENING
     Route: 065
     Dates: start: 2019, end: 2019
  3. LEVETIRACETAM. [Suspect]
     Active Substance: LEVETIRACETAM
     Indication: CRANIOCEREBRAL INJURY
     Dosage: 2 DF, BID (250 MG, IN THE MORNING AND EVENING) (AMBIGUOUSLY REPORTED)
     Route: 065
     Dates: start: 2019, end: 20191229

REACTIONS (13)
  - Defaecation disorder [Unknown]
  - Dyspnoea [Unknown]
  - Product use in unapproved indication [Unknown]
  - Insomnia [Unknown]
  - Muscle spasms [Unknown]
  - Loss of consciousness [Unknown]
  - Parosmia [Unknown]
  - Weight decreased [Unknown]
  - Drug interaction [Unknown]
  - Taste disorder [Recovering/Resolving]
  - Diarrhoea [Unknown]
  - Abdominal pain upper [Unknown]
  - Decreased appetite [Unknown]
